FAERS Safety Report 10187311 (Version 1)
Quarter: 2014Q2

REPORT INFORMATION
  Report Type: Spontaneous
  Country: US (occurrence: None)
  Receive Date: 20140520
  Receipt Date: 20140520
  Transmission Date: 20141212
  Serious: Yes (Hospitalization, Other)
  Sender: FDA-Public Use
  Company Number: IMP_07639_2014

PATIENT
  Age: 43 Year
  Sex: Male

DRUGS (1)
  1. METFORMIN [Suspect]
     Indication: PRODUCT USED FOR UNKNOWN INDICATION
     Dosage: (DF)

REACTIONS (9)
  - Metabolic acidosis [None]
  - Lactic acidosis [None]
  - Renal failure acute [None]
  - Anion gap [None]
  - Pneumonia staphylococcal [None]
  - Hypotension [None]
  - Hyperkalaemia [None]
  - Haemodialysis [None]
  - Cardiac failure congestive [None]
